FAERS Safety Report 16835957 (Version 2)
Quarter: 2019Q4

REPORT INFORMATION
  Report Type: Report from Study
  Country: PL (occurrence: PL)
  Receive Date: 20190920
  Receipt Date: 20191001
  Transmission Date: 20200122
  Serious: Yes (Hospitalization, Other)
  Sender: FDA-Public Use
  Company Number: PHHY2019PL210113

PATIENT
  Age: 14 Year
  Sex: Male
  Weight: 34 kg

DRUGS (2)
  1. SOMATROPIN. [Suspect]
     Active Substance: SOMATROPIN
     Indication: GROWTH DISORDER
     Dosage: 0.036 MG/KG, QD
     Route: 058
     Dates: start: 20100302
  2. SOMATROPIN. [Suspect]
     Active Substance: SOMATROPIN
     Dosage: 0.033 MG/KG, QD
     Route: 058
     Dates: start: 20130305, end: 20190906

REACTIONS (1)
  - Pachydermodactyly [Not Recovered/Not Resolved]

NARRATIVE: CASE EVENT DATE: 20190902
